FAERS Safety Report 16790810 (Version 1)
Quarter: 2019Q3

REPORT INFORMATION
  Report Type: Spontaneous
  Country: US (occurrence: US)
  Receive Date: 20190719
  Receipt Date: 20190719
  Transmission Date: 20191005
  Serious: No
  Sender: FDA-Public Use
  Company Number: None

PATIENT
  Age: 65 Year
  Sex: Female

DRUGS (1)
  1. EPCLUSA [Suspect]
     Active Substance: SOFOSBUVIR\VELPATASVIR
     Dates: start: 201905

REACTIONS (4)
  - Product dose omission [None]
  - Headache [None]
  - Inappropriate schedule of product administration [None]
  - Fatigue [None]

NARRATIVE: CASE EVENT DATE: 20190719
